FAERS Safety Report 5987408-8 (Version None)
Quarter: 2008Q4

REPORT INFORMATION
  Report Type: 
  Country: None (occurrence: None)
  Receive Date: 20081209
  Receipt Date: 20081125
  Transmission Date: 20090506
  Serious: Yes (Other)
  Sender: FDA-Public Use
  Company Number: JP-BAYER-200812886BYL

PATIENT
  Age: 45 Year
  Sex: Female

DRUGS (1)
  1. SH T 00186 (YASMIN) [Suspect]
     Indication: DYSMENORRHOEA
     Dosage: TOTAL DAILY DOSE: 1 DF  UNIT DOSE: 1 DF
     Route: 048
     Dates: start: 20080308, end: 20081005

REACTIONS (1)
  - ENDOMETRIAL CANCER [None]
